FAERS Safety Report 4684845-9 (Version None)
Quarter: 2005Q2

REPORT INFORMATION
  Report Type: 
  Country: None (occurrence: None)
  Receive Date: 20050531
  Receipt Date: 20041103
  Transmission Date: 20051028
  Serious: Yes (Other)
  Sender: FDA-Public Use
  Company Number: USA041183111

PATIENT
  Age: 67 Year
  Sex: Female

DRUGS (1)
  1. ZYPREXA [Suspect]
     Indication: NERVOUSNESS
     Dosage: 10 MG/1 DAY

REACTIONS (4)
  - CONVULSION [None]
  - FALL [None]
  - MEMORY IMPAIRMENT [None]
  - VISION BLURRED [None]
